FAERS Safety Report 6553677-9 (Version None)
Quarter: 2010Q1

REPORT INFORMATION
  Report Type: 
  Country: None (occurrence: None)
  Receive Date: 20100125
  Receipt Date: 20100125
  Transmission Date: 20100710
  Serious: Yes (Other)
  Sender: FDA-Public Use
  Company Number: None

PATIENT
  Sex: Female
  Weight: 63.5036 kg

DRUGS (5)
  1. DILTIAZEM [Suspect]
     Indication: HYPERTENSION
     Dosage: 1 DAILY MOUTH
     Route: 048
     Dates: start: 20091226, end: 20091228
  2. DILTIAZEM [Suspect]
     Indication: HYPERTENSION
     Dosage: 1 DAILY MOUTH
     Route: 048
     Dates: start: 20091004
  3. DILTIAZEM [Suspect]
     Indication: HYPERTENSION
     Dosage: 1 DAILY MOUTH
     Route: 048
     Dates: start: 20090917, end: 20091004
  4. DILTIAZEM [Suspect]
     Indication: HYPERTENSION
     Dosage: 1 DAILY MOUTH
     Route: 048
     Dates: start: 20091222, end: 20091225
  5. DILTIAZEM [Suspect]
     Indication: HYPERTENSION
     Dosage: 1 DAILY MOUTH
     Route: 048
     Dates: start: 20100102

REACTIONS (2)
  - DYSPNOEA [None]
  - RASH ERYTHEMATOUS [None]
